FAERS Safety Report 8950583 (Version 1)
Quarter: 2012Q4

REPORT INFORMATION
  Report Type: Spontaneous
  Country: US (occurrence: None)
  Receive Date: 20121204
  Receipt Date: 20121204
  Transmission Date: 20130627
  Serious: No
  Sender: FDA-Public Use
  Company Number: None

PATIENT

DRUGS (3)
  1. VENTOLIN HFA [Suspect]
     Indication: PULMONARY EDEMA
     Dosage: 90 mcg STAT Endotracheal
One Dose
     Route: 007
     Dates: start: 20121130, end: 20121130
  2. VENTOLIN HFA [Suspect]
     Indication: ANESTHESIA
     Dosage: 90 mcg STAT Endotracheal
One Dose
     Route: 007
     Dates: start: 20121130, end: 20121130
  3. VENTOLIN HFA [Suspect]

REACTIONS (1)
  - Device malfunction [None]
